FAERS Safety Report 18571980 (Version 3)
Quarter: 2021Q3

REPORT INFORMATION
  Report Type: Report from Study
  Country: MX (occurrence: MX)
  Receive Date: 20201202
  Receipt Date: 20210715
  Transmission Date: 20211014
  Serious: No
  Sender: FDA-Public Use
  Company Number: NVSC2020MX297628

PATIENT
  Age: 61 Year
  Sex: Female
  Weight: 89 kg

DRUGS (8)
  1. PARACETAMOL [Concomitant]
     Active Substance: ACETAMINOPHEN
     Indication: PAIN
     Dosage: 500 MG, 1 OR 2 TABLETS IN THE EVENT OF PAIN, MANY YEARS AGO
     Route: 048
  2. OMEPRAZOLE. [Concomitant]
     Active Substance: OMEPRAZOLE
     Indication: GASTRITIS
     Dosage: 20 MG, QD, 10 YEARS AGO
     Route: 048
     Dates: start: 2010
  3. TASIGNA [Suspect]
     Active Substance: NILOTINIB
     Dosage: 800 MG, QD
     Route: 048
     Dates: start: 2017
  4. HYDROCHLOROTHIAZIDE. [Concomitant]
     Active Substance: HYDROCHLOROTHIAZIDE
     Indication: HYPERTENSION
     Dosage: 25 MG, QD, 10 YEARS AGO
     Route: 048
     Dates: start: 2005
  5. ENALAPRIL [Concomitant]
     Active Substance: ENALAPRIL
     Indication: HYPERTENSION
     Dosage: 20 MG, BID
     Route: 048
     Dates: start: 2005
  6. TASIGNA [Suspect]
     Active Substance: NILOTINIB
     Dosage: 400 MG, IN THE MORNING AND IN THE AFTERNOON
     Route: 048
     Dates: start: 2017
  7. IMATINIB. [Suspect]
     Active Substance: IMATINIB MESYLATE
     Indication: CHRONIC MYELOID LEUKAEMIA
     Dosage: 1 UNK, BID (IN THE MORNING AND AT NIGHT)
     Route: 048
     Dates: start: 2015, end: 2017
  8. TASIGNA [Suspect]
     Active Substance: NILOTINIB
     Indication: CHRONIC MYELOID LEUKAEMIA
     Dosage: 800 MG, QD
     Route: 048
     Dates: start: 2017

REACTIONS (11)
  - Myalgia [Not Recovered/Not Resolved]
  - Abdominal pain upper [Not Recovered/Not Resolved]
  - Headache [Not Recovered/Not Resolved]
  - Product dose omission issue [Unknown]
  - Product supply issue [Unknown]
  - Bone pain [Not Recovered/Not Resolved]
  - Illness [Not Recovered/Not Resolved]
  - Depressed mood [Not Recovered/Not Resolved]
  - Blood cholesterol increased [Unknown]
  - Off label use [Unknown]
  - Dizziness [Not Recovered/Not Resolved]

NARRATIVE: CASE EVENT DATE: 2018
